FAERS Safety Report 7116874-X (Version None)
Quarter: 2010Q4

REPORT INFORMATION
  Report Type: 
  Country: None (occurrence: None)
  Receive Date: 20101122
  Receipt Date: 20101111
  Transmission Date: 20110411
  Serious: Yes (Hospitalization, Other)
  Sender: FDA-Public Use
  Company Number: US-ELI_LILLY_AND_COMPANY-US201010001967

PATIENT
  Sex: Female

DRUGS (1)
  1. GEMZAR [Suspect]
     Dosage: 1600 MG, UNK
     Dates: end: 20091202

REACTIONS (1)
  - MALIGNANT NEOPLASM PROGRESSION [None]
